FAERS Safety Report 19070788 (Version 1)
Quarter: 2021Q1

REPORT INFORMATION
  Report Type: Report from Study
  Country: US (occurrence: US)
  Receive Date: 20210330
  Receipt Date: 20210330
  Transmission Date: 20210420
  Serious: Yes (Other)
  Sender: FDA-Public Use
  Company Number: US-ACADIA PHARMACEUTICALS INC.-ACA-2021-PIM-001102

PATIENT
  Age: 70 Year
  Sex: Female

DRUGS (1)
  1. NUPLAZID [Suspect]
     Active Substance: PIMAVANSERIN TARTRATE
     Indication: PARKINSON^S DISEASE
     Dosage: 10 MILLIGRAM, QD
     Route: 048
     Dates: start: 202102

REACTIONS (5)
  - Chest pain [Unknown]
  - Hallucination [Unknown]
  - Underdose [Not Recovered/Not Resolved]
  - Dyspnoea [Unknown]
  - Delusion [Unknown]

NARRATIVE: CASE EVENT DATE: 202102
